FAERS Safety Report 23639210 (Version 1)
Quarter: 2024Q1

REPORT INFORMATION
  Report Type: Spontaneous
  Country: US (occurrence: US)
  Receive Date: 20240315
  Receipt Date: 20240315
  Transmission Date: 20240410
  Serious: Yes (Other)
  Sender: FDA-Public Use
  Company Number: US-AUROBINDO-AUR-APL-2024-011903

PATIENT
  Age: 63 Year
  Sex: Female

DRUGS (2)
  1. DOFETILIDE [Interacting]
     Active Substance: DOFETILIDE
     Indication: Atrial fibrillation
     Dosage: UNK
     Route: 065
  2. SEVOFLURANE [Interacting]
     Active Substance: SEVOFLURANE
     Indication: General anaesthesia
     Dosage: UNK

REACTIONS (5)
  - Electrocardiogram QT prolonged [Recovered/Resolved]
  - Ventricular fibrillation [Unknown]
  - Electrocardiogram T wave abnormal [Unknown]
  - Ventricular extrasystoles [Recovered/Resolved]
  - Drug interaction [Unknown]
